FAERS Safety Report 10881960 (Version 1)
Quarter: 2015Q1

REPORT INFORMATION
  Report Type: Spontaneous
  Country: US (occurrence: None)
  Receive Date: 20150226
  Receipt Date: 20150226
  Transmission Date: 20150721
  Serious: Yes (Death)
  Sender: FDA-Public Use
  Company Number: ABR_02033_2015

PATIENT
  Age: 69 Year
  Sex: Male

DRUGS (9)
  1. SALICYLATES NOS [Suspect]
     Active Substance: UNSPECIFIED INGREDIENT
     Indication: PRODUCT USED FOR UNKNOWN INDICATION
     Dosage: DF
     Route: 048
  2. QUETIAPINE [Suspect]
     Active Substance: QUETIAPINE
     Indication: PRODUCT USED FOR UNKNOWN INDICATION
     Dosage: DF
     Route: 048
  3. FINASTERIDE. [Suspect]
     Active Substance: FINASTERIDE
     Indication: PRODUCT USED FOR UNKNOWN INDICATION
     Dosage: DF
     Route: 048
  4. OXYBUTYNIN [Suspect]
     Active Substance: OXYBUTYNIN
     Indication: PRODUCT USED FOR UNKNOWN INDICATION
     Dosage: DF
     Route: 048
  5. LAMOTRIGINE. [Suspect]
     Active Substance: LAMOTRIGINE
     Indication: PRODUCT USED FOR UNKNOWN INDICATION
     Dosage: DF
     Route: 048
  6. CARDIAC GLYCOSIDES [Suspect]
     Active Substance: UNSPECIFIED INGREDIENT
     Indication: PRODUCT USED FOR UNKNOWN INDICATION
     Dosage: DF
     Route: 048
  7. CLONAZEPAM. [Suspect]
     Active Substance: CLONAZEPAM
     Indication: PRODUCT USED FOR UNKNOWN INDICATION
     Dosage: DF
     Route: 048
  8. TRAZODONE [Suspect]
     Active Substance: TRAZODONE HYDROCHLORIDE
     Indication: PRODUCT USED FOR UNKNOWN INDICATION
     Dosage: DF
     Route: 048
  9. ESCITALOPRAM [Suspect]
     Active Substance: ESCITALOPRAM OXALATE
     Indication: PRODUCT USED FOR UNKNOWN INDICATION
     Dosage: DF
     Route: 048

REACTIONS (3)
  - Poisoning [None]
  - Completed suicide [None]
  - Exposure via ingestion [None]

NARRATIVE: CASE EVENT DATE: 2013
